FAERS Safety Report 5927366-5 (Version None)
Quarter: 2008Q4

REPORT INFORMATION
  Report Type: 
  Country: None (occurrence: None)
  Receive Date: 20081020
  Receipt Date: 20081007
  Transmission Date: 20090506
  Serious: Yes (Other)
  Sender: FDA-Public Use
  Company Number: 230457K08USA

PATIENT
  Age: 56 Year
  Sex: Male

DRUGS (5)
  1. REBIF [Suspect]
     Indication: MULTIPLE SCLEROSIS
     Dosage: 144 MCG, 3 IN 1 WEEKS, SUBCUTANEOUS
     Route: 058
     Dates: start: 20050301
  2. LISINOPRIL [Concomitant]
  3. METOPROLOL (METOPROLOL /00376901/) [Concomitant]
  4. BACLOFEN [Concomitant]
  5. ADVIL [Concomitant]

REACTIONS (1)
  - ANEURYSM [None]
